FAERS Safety Report 13831670 (Version 2)
Quarter: 2017Q3

REPORT INFORMATION
  Report Type: Report from Study
  Country: CA (occurrence: CA)
  Receive Date: 20170803
  Receipt Date: 20170919
  Transmission Date: 20171127
  Serious: Yes (Other)
  Sender: FDA-Public Use
  Company Number: CA-REGENERON PHARMACEUTICALS, INC.-2017-19630

PATIENT

DRUGS (2)
  1. AVASTIN [Concomitant]
     Active Substance: BEVACIZUMAB
     Indication: PRODUCT USED FOR UNKNOWN INDICATION
     Dosage: NOT REPORTED
     Dates: start: 201701
  2. EYLEA [Suspect]
     Active Substance: AFLIBERCEPT
     Indication: DIABETIC RETINAL OEDEMA
     Dosage: DOSE AND FREQUENCY UNSPECIFIED. TOTAL NUMBER OF INJECTIONS NOT REPORTED.
     Dates: start: 20160302

REACTIONS (2)
  - Eye infection [Unknown]
  - Cataract [Unknown]

NARRATIVE: CASE EVENT DATE: 20161213
